FAERS Safety Report 9368787 (Version 3)
Quarter: 2013Q3

REPORT INFORMATION
  Report Type: Spontaneous
  Country: US (occurrence: US)
  Receive Date: 20130626
  Receipt Date: 20130923
  Transmission Date: 20140515
  Serious: Yes (Other)
  Sender: FDA-Public Use
  Company Number: US-ROCHE-1241280

PATIENT
  Age: 67 Year
  Sex: Male

DRUGS (8)
  1. ERIVEDGE [Suspect]
     Indication: SKIN CANCER
     Route: 048
     Dates: start: 201203, end: 201304
  2. DARUNAVIR [Suspect]
     Indication: HIV INFECTION
     Route: 048
     Dates: start: 20130808
  3. EMTRICITABINE [Suspect]
     Indication: HIV INFECTION
     Route: 048
     Dates: start: 20130808
  4. TENOFOVIR [Suspect]
     Indication: HIV INFECTION
     Route: 048
     Dates: start: 20130808
  5. RITONAVIR [Suspect]
     Indication: HIV INFECTION
     Route: 048
     Dates: start: 20130808
  6. BACTRIM [Suspect]
     Indication: HIV INFECTION
     Route: 048
     Dates: start: 20120223
  7. CLINDAMYCIN [Concomitant]
     Route: 065
  8. LOPERAMIDE [Concomitant]
     Route: 065

REACTIONS (4)
  - Neuropathy peripheral [Unknown]
  - Visual field defect [Recovered/Resolved]
  - Dizziness [Unknown]
  - Diarrhoea [Unknown]
